FAERS Safety Report 6839167-4 (Version None)
Quarter: 2010Q3

REPORT INFORMATION
  Report Type: 
  Country: None (occurrence: None)
  Receive Date: 20100714
  Receipt Date: 20100702
  Transmission Date: 20110219
  Serious: Yes (Hospitalization)
  Sender: FDA-Public Use
  Company Number: DE-ELI_LILLY_AND_COMPANY-DE201007000665

PATIENT
  Sex: Female

DRUGS (7)
  1. FORTEO [Suspect]
     Route: 058
     Dates: start: 20091210
  2. LEVOTHYROXINE SODIUM [Concomitant]
  3. CALCIUM+VIT D /00944201/ [Concomitant]
     Dosage: 400 MG, UNK
  4. CARMEN [Concomitant]
     Indication: HYPERTENSION
     Dosage: 10 MG, UNK
  5. RAMIPRIL [Concomitant]
     Dosage: 10 MG, UNK
  6. SIMVASTATIN [Concomitant]
  7. ASPIRIN [Concomitant]

REACTIONS (4)
  - CONFUSIONAL STATE [None]
  - ELECTROLYTE IMBALANCE [None]
  - MUSCULAR WEAKNESS [None]
  - PAIN IN JAW [None]
